FAERS Safety Report 7652346-1 (Version None)
Quarter: 2011Q3

REPORT INFORMATION
  Report Type: 
  Country: None (occurrence: None)
  Receive Date: 20110722
  Receipt Date: 20110216
  Transmission Date: 20111222
  Serious: Yes (Other)
  Sender: FDA-Public Use
  Company Number: UTC-005267

PATIENT
  Age: 16 Year
  Sex: Male
  Weight: 54.4 kg

DRUGS (1)
  1. REMODULIN [Suspect]
     Dosage: INTRAVENOUS
     Route: 042

REACTIONS (1)
  - DEVICE RELATED INFECTION [None]
